FAERS Safety Report 11496291 (Version 3)
Quarter: 2015Q3

REPORT INFORMATION
  Report Type: Report from Study
  Country: AU (occurrence: AU)
  Receive Date: 20150911
  Receipt Date: 20150923
  Transmission Date: 20151125
  Serious: Yes (Hospitalization)
  Sender: FDA-Public Use
  Company Number: PHHO2015AU013866

PATIENT
  Age: 70 Year
  Sex: Female
  Weight: 74.9 kg

DRUGS (32)
  1. PARAMAX [Concomitant]
     Active Substance: ACETAMINOPHEN
     Indication: ARTHRALGIA
     Dosage: 200 G, PRN
     Route: 048
     Dates: start: 201411
  2. PARAMAX [Concomitant]
     Active Substance: ACETAMINOPHEN
     Dosage: 1 G, PRN
     Route: 048
     Dates: start: 20150512
  3. COMPARATOR LETROZOLE [Suspect]
     Active Substance: LETROZOLE
     Indication: BREAST CANCER
     Dosage: 2.5 MG, QD
     Route: 065
     Dates: start: 20150901
  4. STEMETIL [Concomitant]
     Active Substance: PROCHLORPERAZINE MALEATE
     Indication: NAUSEA
     Dosage: 5 UG, PRN
     Route: 048
     Dates: start: 20140829, end: 20140906
  5. PANADOL [Concomitant]
     Active Substance: ACETAMINOPHEN
     Indication: PAIN
     Dosage: 500 G, PRN
     Route: 048
     Dates: start: 20140829
  6. AUGMENTIN DUO FORTE [Concomitant]
     Active Substance: AMOXICILLIN\CLAVULANATE POTASSIUM
     Indication: SINUSITIS
     Dosage: 575/125 BID
     Route: 048
     Dates: start: 20140915, end: 20140925
  7. CHLOROMYCETIN [Concomitant]
     Active Substance: CHLORAMPHENICOL
     Indication: CONJUNCTIVITIS
     Dosage: 0.5 %, UNK
     Route: 047
     Dates: start: 20140915, end: 20140919
  8. RIKODEINE [Concomitant]
     Active Substance: DIHYDROCODEINE BITARTRATE
     Indication: COUGH
     Dosage: 10 UG, PRN
     Route: 048
     Dates: start: 20140901, end: 20140925
  9. DIPROSONE [Concomitant]
     Active Substance: BETAMETHASONE DIPROPIONATE
     Indication: RASH
     Dosage: UNK
     Route: 061
     Dates: start: 201505
  10. TOBRAMYCIN. [Concomitant]
     Active Substance: TOBRAMYCIN
     Indication: CONJUNCTIVITIS
     Dosage: 2 G, QD
     Route: 047
     Dates: start: 20140827, end: 201409
  11. DICLOFENAC [Concomitant]
     Active Substance: DICLOFENAC
     Indication: BACK PAIN
     Dosage: 50 MG, BID
     Route: 048
     Dates: start: 20150119, end: 20150126
  12. VITAMIN D [Concomitant]
     Active Substance: CHOLECALCIFEROL
     Indication: VITAMIN D DEFICIENCY
     Dosage: 1000 IU, QD
     Route: 048
     Dates: start: 20150324
  13. CRESTOR [Concomitant]
     Active Substance: ROSUVASTATIN CALCIUM
     Indication: BLOOD CHOLESTEROL INCREASED
     Dosage: 100 MG, QD
     Route: 048
     Dates: start: 201008
  14. AZOPT [Concomitant]
     Active Substance: BRINZOLAMIDE
     Indication: GLAUCOMA
     Dosage: 1 GTT, BID
     Route: 047
     Dates: start: 200901, end: 20141014
  15. CICLESONIDE [Concomitant]
     Active Substance: CICLESONIDE
     Indication: SINUSITIS
     Dosage: 500 UG, BID
     Route: 045
     Dates: start: 20140915, end: 20140925
  16. COSOPT [Concomitant]
     Active Substance: DORZOLAMIDE HYDROCHLORIDE\TIMOLOL MALEATE
     Indication: GLAUCOMA
     Dosage: T EACH DAY, BD
     Route: 047
     Dates: start: 20141015
  17. PLACEBO [Suspect]
     Active Substance: UNSPECIFIED INGREDIENT
     Indication: BREAST CANCER
     Dosage: CODE NOT BROKEN
     Route: 065
     Dates: start: 20150901, end: 20150901
  18. IMODIUM [Concomitant]
     Active Substance: LOPERAMIDE HYDROCHLORIDE
     Indication: DIARRHOEA
     Dosage: 2 MG, PRN
     Route: 048
     Dates: start: 20150404, end: 20150405
  19. ROXITHROMYCIN [Concomitant]
     Active Substance: ROXITHROMYCIN
     Indication: URINARY TRACT INFECTION
     Dosage: 150 MG, BID
     Route: 048
     Dates: start: 20140824, end: 20140829
  20. ULTRACLEAN EPA/DHA PLUS [Concomitant]
     Indication: SUPPLEMENTATION THERAPY
     Dosage: 5000 UG, QD
     Route: 048
     Dates: start: 201410
  21. AMOXICILLIN+CLAVULANIC ACID [Concomitant]
     Active Substance: AMOXICILLIN\CLAVULANIC ACID
     Dosage: 875 MG, BID
     Route: 048
     Dates: start: 20150325, end: 20150413
  22. DENOSUMAB [Concomitant]
     Active Substance: DENOSUMAB
     Indication: PROPHYLAXIS
     Dosage: 120 MG, QMO
     Route: 058
     Dates: start: 20140911
  23. ALPHAGAN P [Concomitant]
     Active Substance: BRIMONIDINE TARTRATE
     Indication: GLAUCOMA
     Dosage: 2 MG/ML, BID
     Route: 047
     Dates: start: 20150608, end: 20150821
  24. NUROFEN [Concomitant]
     Active Substance: IBUPROFEN
     Indication: ARTHRALGIA
     Dosage: 1 G, PRN
     Route: 048
     Dates: start: 20150512
  25. ACETAZOLAMIDE. [Concomitant]
     Active Substance: ACETAZOLAMIDE
     Indication: GLAUCOMA
     Dosage: 25 MG, QD
     Route: 048
     Dates: start: 20150821
  26. STEMETIL ^AVENTIS PHARMA^ [Concomitant]
     Active Substance: PROCHLORPERAZINE MALEATE
     Indication: VERTIGO
     Dosage: 5 MG, PRN
     Route: 048
     Dates: start: 1999
  27. STEMETIL [Concomitant]
     Active Substance: PROCHLORPERAZINE MALEATE
     Dosage: 5 UG, PRN
     Route: 048
     Dates: start: 20140911
  28. FLUVAX [Concomitant]
     Active Substance: INFLUENZA VIRUS VACCINE
     Indication: ANTIVIRAL PROPHYLAXIS
     Dosage: 0.5 MG, UNK
     Route: 065
     Dates: start: 20150511, end: 20150511
  29. XALATAN [Concomitant]
     Active Substance: LATANOPROST
     Indication: GLAUCOMA
     Dosage: 2.5 XI EYE DROPS
     Route: 047
     Dates: start: 20150821
  30. THYROXINE [Concomitant]
     Active Substance: LEVOTHYROXINE
     Indication: BLOOD THYROID STIMULATING HORMONE DECREASED
     Dosage: 125 MG, QD
     Route: 048
     Dates: start: 201108
  31. ALBALON [Concomitant]
     Active Substance: NAPHAZOLINE HYDROCHLORIDE
     Indication: CONJUNCTIVITIS
     Dosage: 0.1 %, QD
     Route: 047
     Dates: start: 20140919
  32. HEPATITIS B VACCINE [Concomitant]
     Active Substance: HEPATITIS B VIRUS VACCINE
     Indication: PROPHYLAXIS
     Dosage: UNK
     Route: 030
     Dates: start: 20141119, end: 20141119

REACTIONS (1)
  - Glaucoma [Not Recovered/Not Resolved]

NARRATIVE: CASE EVENT DATE: 20150901
